FAERS Safety Report 11856449 (Version 1)
Quarter: 2015Q4

REPORT INFORMATION
  Report Type: Spontaneous
  Country: US (occurrence: None)
  Receive Date: 20151218
  Receipt Date: 20151218
  Transmission Date: 20160305
  Serious: Yes (Disabling, Other)
  Sender: FDA-Public Use
  Company Number: None

PATIENT
  Age: 61 Year
  Sex: Male
  Weight: 74.84 kg

DRUGS (16)
  1. ASPIRIN. [Concomitant]
     Active Substance: ASPIRIN
  2. FLONASE SPRAY [Concomitant]
  3. PRILOSEC [Concomitant]
     Active Substance: OMEPRAZOLE MAGNESIUM
  4. ZETIA [Concomitant]
     Active Substance: EZETIMIBE
  5. VITAMIN D3 [Concomitant]
     Active Substance: CHOLECALCIFEROL
  6. SELENIUM [Concomitant]
     Active Substance: SELENIUM
  7. MAGNESIUM [Concomitant]
     Active Substance: MAGNESIUM
  8. PANTANOL EYE DROPS [Concomitant]
  9. SOMA [Concomitant]
     Active Substance: CARISOPRODOL
  10. TAMASULOSIN [Concomitant]
  11. TRAMADOL. [Concomitant]
     Active Substance: TRAMADOL
  12. MULTIVITAMIN [Concomitant]
     Active Substance: VITAMINS
  13. LEVOFLOXACIN. [Suspect]
     Active Substance: LEVOFLOXACIN
     Indication: BRONCHITIS
     Route: 048
     Dates: start: 20121220, end: 20130221
  14. LEVOFLOXACIN. [Suspect]
     Active Substance: LEVOFLOXACIN
     Indication: SINUSITIS
     Route: 048
     Dates: start: 20121220, end: 20130221
  15. LOSARTAN. [Concomitant]
     Active Substance: LOSARTAN
  16. ALLEGRA-D [Concomitant]
     Active Substance: FEXOFENADINE\PSEUDOEPHEDRINE

REACTIONS (7)
  - Neuropathy peripheral [None]
  - Joint injury [None]
  - Pain [None]
  - Musculoskeletal pain [None]
  - Fall [None]
  - Back pain [None]
  - Gait disturbance [None]

NARRATIVE: CASE EVENT DATE: 20130426
